FAERS Safety Report 8972638 (Version 2)
Quarter: 2014Q2

REPORT INFORMATION
  Report Type: Report from Study
  Country: GB (occurrence: GB)
  Receive Date: 20121218
  Receipt Date: 20140421
  Transmission Date: 20141212
  Serious: Yes (Other)
  Sender: FDA-Public Use
  Company Number: GB-ROCHE-1168111

PATIENT
  Age: 44 Year
  Sex: Female

DRUGS (1)
  1. BEVACIZUMAB [Suspect]
     Indication: MALIGNANT MELANOMA
     Dosage: DATE OF LAST DOSE TAKEN PRIOR TO SAE 03/MAY/2011. TOTAL DOSE OF AVASTIN TAKEN PRIOR TO SAE 2200 MG.
     Route: 042
     Dates: start: 20100524

REACTIONS (1)
  - Amenorrhoea [Recovered/Resolved]
